FAERS Safety Report 14461329 (Version 1)
Quarter: 2018Q1

REPORT INFORMATION
  Report Type: Other
  Country: US (occurrence: US)
  Receive Date: 20180130
  Receipt Date: 20180130
  Transmission Date: 20180509
  Serious: No
  Sender: FDA-Public Use
  Company Number: US-ACORDA-ACO_142740_2017

PATIENT
  Sex: Male

DRUGS (7)
  1. MULTIVITAMIN [Concomitant]
     Active Substance: VITAMINS
     Indication: PRODUCT USED FOR UNKNOWN INDICATION
     Dosage: UNK
     Route: 065
  2. MODAFINIL. [Concomitant]
     Active Substance: MODAFINIL
     Indication: PRODUCT USED FOR UNKNOWN INDICATION
     Dosage: UNK
     Route: 065
  3. OCREVUS [Suspect]
     Active Substance: OCRELIZUMAB
     Indication: PRODUCT USED FOR UNKNOWN INDICATION
     Dosage: 300/10 ML INJECTION, UNK
     Route: 065
  4. AMPYRA [Suspect]
     Active Substance: DALFAMPRIDINE
     Indication: MULTIPLE SCLEROSIS
     Dosage: 10 MG, BID
     Route: 048
     Dates: start: 20170627
  5. AMPYRA [Suspect]
     Active Substance: DALFAMPRIDINE
     Dosage: 10 MG, BID
     Route: 048
  6. BACLOFEN. [Concomitant]
     Active Substance: BACLOFEN
     Indication: PRODUCT USED FOR UNKNOWN INDICATION
     Dosage: 10 MG, UNK
     Route: 065
  7. MYRBETRIQ [Concomitant]
     Active Substance: MIRABEGRON
     Indication: PRODUCT USED FOR UNKNOWN INDICATION
     Dosage: UNK
     Route: 065

REACTIONS (5)
  - Joint lock [Unknown]
  - Hypokinesia [Unknown]
  - Tremor [Not Recovered/Not Resolved]
  - Musculoskeletal stiffness [Unknown]
  - Fall [Unknown]
